FAERS Safety Report 10354293 (Version 2)
Quarter: 2015Q4

REPORT INFORMATION
  Report Type: Spontaneous
  Country: US (occurrence: US)
  Receive Date: 20140731
  Receipt Date: 20151209
  Transmission Date: 20160304
  Serious: Yes (Hospitalization, Other)
  Sender: FDA-Public Use
  Company Number: US-GLAXOSMITHKLINE-A1039331A

PATIENT
  Sex: Male

DRUGS (21)
  1. DYAZIDE [Suspect]
     Active Substance: HYDROCHLOROTHIAZIDE\TRIAMTERENE
     Dosage: 25 / 37.5, 1 - 2 TABLETS DAILY PRN FOR SYMPTOMS
     Route: 048
     Dates: start: 2005
  2. GABAPENTIN. [Concomitant]
     Active Substance: GABAPENTIN
  3. TRIAMTERENE AND HYDROCHLOROTHIAZIDE [Suspect]
     Active Substance: HYDROCHLOROTHIAZIDE\TRIAMTERENE
     Indication: MENIERE^S DISEASE
     Dosage: 1 - 2 TABLETS DAILY PRN FOR SYMPTOMS
     Route: 048
     Dates: start: 2005
  4. METOPROLOL [Concomitant]
     Active Substance: METOPROLOL
  5. LISINOPRIL. [Concomitant]
     Active Substance: LISINOPRIL
  6. VERAPAMIL [Concomitant]
     Active Substance: VERAPAMIL HYDROCHLORIDE
  7. VICODIN [Concomitant]
     Active Substance: ACETAMINOPHEN\HYDROCODONE BITARTRATE
     Dosage: UNK, PRN
  8. DYAZIDE [Suspect]
     Active Substance: HYDROCHLOROTHIAZIDE\TRIAMTERENE
     Indication: MENIERE^S DISEASE
     Dosage: 37.5 MG, 1D
     Route: 048
     Dates: start: 1981
  9. DIGOXIN. [Concomitant]
     Active Substance: DIGOXIN
  10. EXCEDRIN PM [Concomitant]
     Active Substance: ACETAMINOPHEN\DIPHENHYDRAMINE\DIPHENHYDRAMINE CITRATE
  11. LIPITOR [Concomitant]
     Active Substance: ATORVASTATIN CALCIUM
  12. VALIUM [Concomitant]
     Active Substance: DIAZEPAM
  13. COUMADIN [Concomitant]
     Active Substance: WARFARIN SODIUM
  14. VITAMIN C [Concomitant]
     Active Substance: ASCORBIC ACID
  15. SEREVENT DISKUS [Concomitant]
     Active Substance: SALMETEROL XINAFOATE
  16. CELEBREX [Concomitant]
     Active Substance: CELECOXIB
  17. HYDROCODONE [Concomitant]
     Active Substance: HYDROCODONE
  18. RESTASIS [Concomitant]
     Active Substance: CYCLOSPORINE
  19. FLOVENT [Concomitant]
     Active Substance: FLUTICASONE PROPIONATE
  20. DIAZEPAM. [Concomitant]
     Active Substance: DIAZEPAM
  21. NEURONTIN [Concomitant]
     Active Substance: GABAPENTIN

REACTIONS (5)
  - Therapeutic response unexpected [Unknown]
  - Deafness [Not Recovered/Not Resolved]
  - Drug ineffective [Unknown]
  - Product substitution issue [Unknown]
  - Vertigo [Not Recovered/Not Resolved]
